FAERS Safety Report 4526193-3 (Version None)
Quarter: 2004Q4

REPORT INFORMATION
  Report Type: 
  Country: None (occurrence: None)
  Receive Date: 20041210
  Receipt Date: 20041129
  Transmission Date: 20050328
  Serious: Yes (Life-Threatening, Hospitalization)
  Sender: FDA-Public Use
  Company Number: 2004SE04176

PATIENT
  Age: 46 Year
  Sex: Male

DRUGS (2)
  1. KENZEN [Suspect]
     Indication: HYPERTENSION
     Dosage: 8 MG QD PO
     Route: 048
     Dates: end: 20040101
  2. KENZEN [Suspect]
     Indication: HYPERTENSION
     Dosage: 16 MG QD PO
     Route: 048
     Dates: start: 20040101, end: 20040206

REACTIONS (31)
  - AGITATION [None]
  - AMYOTROPHY [None]
  - ANAL FISSURE [None]
  - ASTHENIA [None]
  - BILIARY CYST [None]
  - BILIARY TRACT DISORDER [None]
  - BLOOD IMMUNOGLOBULIN G INCREASED [None]
  - BRADYCARDIA [None]
  - CHOLANGIOLITIS [None]
  - CONFUSIONAL STATE [None]
  - CYTOLYTIC HEPATITIS [None]
  - DEPRESSION [None]
  - DIALYSIS [None]
  - DUODENAL ULCER HAEMORRHAGE [None]
  - EPSTEIN-BARR VIRUS ANTIGEN POSITIVE [None]
  - HELICOBACTER PYLORI IDENTIFICATION TEST POSITIVE [None]
  - HEPATITIS B POSITIVE [None]
  - HEPATITIS CHOLESTATIC [None]
  - HEPATITIS E ANTIBODY POSITIVE [None]
  - HEPATOMEGALY [None]
  - HYPERGAMMAGLOBULINAEMIA [None]
  - HYPERTENSION [None]
  - HYPOALBUMINAEMIA [None]
  - HYPOKALAEMIA [None]
  - HYPOMANIA [None]
  - HYPOPROTEINAEMIA [None]
  - LYMPHADENOPATHY [None]
  - NORMOCHROMIC NORMOCYTIC ANAEMIA [None]
  - RASH ERYTHEMATOUS [None]
  - RENAL FAILURE [None]
  - WEIGHT DECREASED [None]
